FAERS Safety Report 5728097-7 (Version None)
Quarter: 2008Q2

REPORT INFORMATION
  Report Type: 
  Country: None (occurrence: None)
  Receive Date: 20080505
  Receipt Date: 20080429
  Transmission Date: 20081010
  Serious: Yes (Death)
  Sender: FDA-Public Use
  Company Number: CA-PFIZER INC-A120377

PATIENT
  Sex: Male
  Weight: 97 kg

DRUGS (8)
  1. INHALED HUMAN INSULIN [Suspect]
     Indication: TYPE 2 DIABETES MELLITUS
     Dosage: DAILY DOSE:12MG
     Route: 055
     Dates: start: 20000501, end: 20010824
  2. GLYBURIDE [Suspect]
     Indication: TYPE 2 DIABETES MELLITUS
     Dosage: DAILY DOSE:20MG
     Route: 048
  3. METFORMIN HCL [Suspect]
     Indication: TYPE 2 DIABETES MELLITUS
     Dosage: DAILY DOSE:2000MG
     Route: 048
  4. AMITRIPTLINE HCL [Concomitant]
     Route: 048
  5. TAMSULOSIN HCL [Concomitant]
     Route: 048
  6. CALCIUM W/MAGNESIUM [Concomitant]
     Route: 048
  7. ACETYLSALICYLIC ACID SRT [Concomitant]
     Route: 048
  8. OTRIVIN [Concomitant]
     Route: 045

REACTIONS (1)
  - LUNG SQUAMOUS CELL CARCINOMA STAGE UNSPECIFIED [None]
